FAERS Safety Report 9608970 (Version 1)
Quarter: 2013Q4

REPORT INFORMATION
  Report Type: Report from Study
  Country: FR (occurrence: FR)
  Receive Date: 20131009
  Receipt Date: 20131009
  Transmission Date: 20140711
  Serious: Yes (Hospitalization)
  Sender: FDA-Public Use
  Company Number: FR-PFIZER INC-2013279040

PATIENT
  Age: 78 Year
  Sex: Female

DRUGS (12)
  1. SUTENT [Suspect]
     Dosage: 50 MG, DAILY
     Route: 048
     Dates: start: 20120430
  2. STAGID [Concomitant]
     Dosage: 70 MG, 3X/DAY
     Route: 048
  3. AMARYL [Concomitant]
     Dosage: 4 UNK, 1X/DAY
  4. SOTALEX [Concomitant]
     Dosage: 40 MG, 2X/DAY
     Route: 048
  5. PRAVASTATIN [Concomitant]
     Dosage: 230 MG, 1X/DAY
     Route: 048
  6. COKENZEN [Concomitant]
     Dosage: 1 DF, 1X/DAY
     Route: 048
  7. LEVOTHYROX [Concomitant]
     Dosage: 1 DF, 1X/DAY
  8. TARDYFERON [Concomitant]
     Dosage: 1 DF, 1X/DAY
  9. ALPRAZOLAM [Concomitant]
     Dosage: 1 DF, 1X/DAY
  10. PREVISCAN [Concomitant]
     Dosage: UNK
  11. LYRICA [Concomitant]
     Dosage: UNK
  12. VENLAFAXINE [Concomitant]
     Dosage: UNK

REACTIONS (3)
  - Malaise [Not Recovered/Not Resolved]
  - Fall [Not Recovered/Not Resolved]
  - Loss of consciousness [Not Recovered/Not Resolved]
